FAERS Safety Report 21731059 (Version 1)
Quarter: 2022Q4

REPORT INFORMATION
  Report Type: Report from Study
  Country: RU (occurrence: RU)
  Receive Date: 20221215
  Receipt Date: 20221215
  Transmission Date: 20230112
  Serious: Yes (Hospitalization)
  Sender: FDA-Public Use
  Company Number: RU-002147023-NVSC2022RU242329

PATIENT
  Age: 3 Year
  Sex: Male
  Weight: 14.1 kg

DRUGS (1)
  1. ZOLGENSMA [Suspect]
     Active Substance: ONASEMNOGENE ABEPARVOVEC-XIOI
     Indication: Spinal muscular atrophy
     Dosage: 79.8 ML, (10 PACKS)
     Route: 042
     Dates: start: 20221007, end: 20221007

REACTIONS (2)
  - Full blood count abnormal [Recovered/Resolved]
  - Hepatic enzyme increased [Recovered/Resolved]

NARRATIVE: CASE EVENT DATE: 20221001
